FAERS Safety Report 4458966-X (Version None)
Quarter: 2004Q3

REPORT INFORMATION
  Report Type: 
  Country: None (occurrence: None)
  Receive Date: 20040920
  Receipt Date: 20040920
  Transmission Date: 20050211
  Serious: Yes (Other)
  Sender: FDA-Public Use
  Company Number: None

PATIENT
  Age: 80 Year
  Sex: Male
  Weight: 100.9 kg

DRUGS (2)
  1. INDIGO CARMINE [Suspect]
     Indication: BLADDER NEOPLASM
     Dosage: IV X 1 FOR PROCEDURE
     Route: 042
     Dates: start: 20040831
  2. INDIGO CARMINE [Suspect]
     Indication: SURGERY
     Dosage: IV X 1 FOR PROCEDURE
     Route: 042
     Dates: start: 20040831

REACTIONS (3)
  - INFUSION SITE BRUISING [None]
  - INFUSION SITE SWELLING [None]
  - INJECTION SITE EXTRAVASATION [None]
